FAERS Safety Report 20448175 (Version 1)
Quarter: 2022Q1

REPORT INFORMATION
  Report Type: Spontaneous
  Country: US (occurrence: US)
  Receive Date: 20220209
  Receipt Date: 20220209
  Transmission Date: 20220423
  Serious: Yes (Other)
  Sender: FDA-Public Use
  Company Number: US-LUPIN PHARMACEUTICALS INC.-2022-01538

PATIENT
  Age: 60 Year
  Sex: Female

DRUGS (3)
  1. HYDROXYCHLOROQUINE [Suspect]
     Active Substance: HYDROXYCHLOROQUINE
     Indication: Dermatomyositis
     Dosage: UNK
     Route: 065
  2. QUINACRINE [Suspect]
     Active Substance: QUINACRINE
     Indication: Dermatomyositis
     Dosage: UNK
     Route: 065
  3. MYCOPHENOLATE MOFETIL [Suspect]
     Active Substance: MYCOPHENOLATE MOFETIL
     Indication: Dermatomyositis
     Dosage: 3000 MG, QD (MAXIMUM DOSE (UP TO 3000 MG/DAY))
     Route: 065

REACTIONS (3)
  - Condition aggravated [Recovered/Resolved]
  - Dermatomyositis [Recovered/Resolved]
  - Off label use [Unknown]
